FAERS Safety Report 4943807-4 (Version None)
Quarter: 2006Q1

REPORT INFORMATION
  Report Type: 
  Country: None (occurrence: None)
  Receive Date: 20060310
  Receipt Date: 20060227
  Transmission Date: 20060701
  Serious: Yes (Other)
  Sender: FDA-Public Use
  Company Number: 2006029879

PATIENT
  Sex: Female

DRUGS (1)
  1. DEPO-TESTOSTERONE [Suspect]
     Indication: ILL-DEFINED DISORDER
     Dosage: 100 MG (100 MG, EVERY 2 WEEKS), INTRAMUSCULAR
     Route: 030

REACTIONS (3)
  - HYPOMANIA [None]
  - MANIA [None]
  - PSYCHOTIC DISORDER [None]
